FAERS Safety Report 6246911-6 (Version None)
Quarter: 2009Q2

REPORT INFORMATION
  Report Type: 
  Country: None (occurrence: None)
  Receive Date: 20090626
  Receipt Date: 20090617
  Transmission Date: 20091009
  Serious: Yes (Hospitalization)
  Sender: FDA-Public Use
  Company Number: FR-AMGEN-QUU348917

PATIENT
  Sex: Female
  Weight: 90 kg

DRUGS (3)
  1. NEULASTA [Suspect]
     Indication: NEUTROPENIA
     Route: 058
     Dates: start: 20090524, end: 20090524
  2. TAXOTERE [Concomitant]
     Route: 065
     Dates: start: 20090522, end: 20090522
  3. UNSPECIFIED ANTINEOPLASTIC AGENT [Concomitant]
     Route: 065

REACTIONS (11)
  - ABDOMINAL PAIN UPPER [None]
  - ABNORMAL FAECES [None]
  - BONE PAIN [None]
  - DIARRHOEA [None]
  - HOT FLUSH [None]
  - HYPERHIDROSIS [None]
  - HYPOTENSION [None]
  - LIVER DISORDER [None]
  - MENSTRUAL DISORDER [None]
  - URINE COLOUR ABNORMAL [None]
  - VOMITING [None]
